FAERS Safety Report 13055067 (Version 1)
Quarter: 2016Q4

REPORT INFORMATION
  Report Type: Spontaneous
  Country: BR (occurrence: BR)
  Receive Date: 20161222
  Receipt Date: 20161222
  Transmission Date: 20170207
  Serious: Yes (Other)
  Sender: FDA-Public Use
  Company Number: BR-JNJFOC-20161217162

PATIENT
  Age: 34 Year
  Sex: Male

DRUGS (1)
  1. INVEGA SUSTENNA [Suspect]
     Active Substance: PALIPERIDONE PALMITATE
     Indication: SCHIZOPHRENIA
     Dosage: FOR 2 YEARS
     Route: 030

REACTIONS (4)
  - Schizophrenia [Unknown]
  - Incorrect dose administered [Unknown]
  - Product availability issue [Unknown]
  - Underdose [Unknown]
